FAERS Safety Report 6162594-8 (Version None)
Quarter: 2009Q2

REPORT INFORMATION
  Report Type: 
  Country: None (occurrence: None)
  Receive Date: 20090421
  Receipt Date: 20080425
  Transmission Date: 20091009
  Serious: No
  Sender: FDA-Public Use
  Company Number: US-ASTRAZENECA-2007UW13448

PATIENT
  Age: 58 Year
  Sex: Male
  Weight: 71.2 kg

DRUGS (10)
  1. CRESTOR [Suspect]
     Indication: BLOOD CHOLESTEROL INCREASED
     Route: 048
     Dates: start: 20070301
  2. CRESTOR [Suspect]
     Dosage: 10 MG
     Route: 048
     Dates: start: 20070701
  3. ASCORBIC ACID [Concomitant]
  4. MULTI-VITAMIN [Concomitant]
  5. COENZYME Q10 [Concomitant]
  6. MSM [Concomitant]
  7. GLUCOSAMINE [Concomitant]
  8. DRY EYE SUPPLEMENT [Concomitant]
  9. FISH OIL [Concomitant]
  10. CHONDROITIN [Concomitant]

REACTIONS (4)
  - ADRENAL DISORDER [None]
  - BLOOD TRIGLYCERIDES INCREASED [None]
  - CONSTIPATION [None]
  - HIGH DENSITY LIPOPROTEIN DECREASED [None]
